FAERS Safety Report 9519949 (Version 2)
Quarter: 2015Q4

REPORT INFORMATION
  Report Type: Spontaneous
  Country: US (occurrence: US)
  Receive Date: 20130912
  Receipt Date: 20151215
  Transmission Date: 20160305
  Serious: Yes (Hospitalization, Other)
  Sender: FDA-Public Use
  Company Number: US-BAYER-2013-109994

PATIENT
  Age: 37 Year
  Sex: Female
  Weight: 134.69 kg

DRUGS (9)
  1. ECOTRIN [Concomitant]
     Active Substance: ASPIRIN
  2. AMLODIPINE [Concomitant]
     Active Substance: AMLODIPINE BESYLATE
  3. VASOTEC [Concomitant]
     Active Substance: ENALAPRIL MALEATE
  4. ATROPINE. [Concomitant]
     Active Substance: ATROPINE
  5. YAZ [Suspect]
     Active Substance: DROSPIRENONE\ETHINYL ESTRADIOL
     Indication: POLYCYSTIC OVARIES
  6. ZOCOR [Concomitant]
     Active Substance: SIMVASTATIN
  7. SIMVASTATIN. [Concomitant]
     Active Substance: SIMVASTATIN
  8. ASA [Concomitant]
     Active Substance: ASPIRIN
  9. ZETIA [Concomitant]
     Active Substance: EZETIMIBE

REACTIONS (2)
  - Acute myocardial infarction [None]
  - Embolism arterial [None]

NARRATIVE: CASE EVENT DATE: 200908
